FAERS Safety Report 7095499-9 (Version None)
Quarter: 2010Q4

REPORT INFORMATION
  Report Type: 
  Country: None (occurrence: None)
  Receive Date: 20101111
  Receipt Date: 20101029
  Transmission Date: 20110411
  Serious: Yes (Life-Threatening)
  Sender: FDA-Public Use
  Company Number: JP-ELI_LILLY_AND_COMPANY-JP201010005439

PATIENT
  Sex: Male
  Weight: 45 kg

DRUGS (10)
  1. CYMBALTA [Suspect]
     Indication: AUTONOMIC NEUROPATHY
     Dosage: 20 MG, EACH MORNING
     Route: 048
     Dates: start: 20101015, end: 20101015
  2. MIYA-BM [Concomitant]
  3. MUCOSOLVAN [Concomitant]
  4. MUCODYNE [Concomitant]
  5. OMEPRAL [Concomitant]
  6. WARFARIN [Concomitant]
  7. OXYCONTIN [Concomitant]
  8. MAGMITT [Concomitant]
  9. MEXITIL [Concomitant]
  10. LYRICA [Concomitant]

REACTIONS (2)
  - ANAPHYLACTIC SHOCK [None]
  - OFF LABEL USE [None]
